FAERS Safety Report 22125882 (Version 1)
Quarter: 2023Q1

REPORT INFORMATION
  Report Type: Report from Study
  Country: IL (occurrence: IL)
  Receive Date: 20230322
  Receipt Date: 20230322
  Transmission Date: 20230417
  Serious: Yes (Other)
  Sender: FDA-Public Use
  Company Number: IL-SA-SAC20230320000122

PATIENT
  Age: 45 Year
  Sex: Female

DRUGS (1)
  1. ALEMTUZUMAB [Suspect]
     Active Substance: ALEMTUZUMAB
     Indication: Multiple sclerosis
     Dosage: 12 MG, QD
     Route: 041
     Dates: start: 20230312, end: 20230314

REACTIONS (6)
  - Syncope [Recovering/Resolving]
  - Blood glucose decreased [Recovering/Resolving]
  - Asthenia [Recovering/Resolving]
  - Pain in extremity [Not Recovered/Not Resolved]
  - Pain [Recovering/Resolving]
  - Rash [Not Recovered/Not Resolved]

NARRATIVE: CASE EVENT DATE: 20230301
